FAERS Safety Report 6040052-9 (Version None)
Quarter: 2009Q1

REPORT INFORMATION
  Report Type: 
  Country: None (occurrence: None)
  Receive Date: 20090116
  Receipt Date: 20071128
  Transmission Date: 20090719
  Serious: No
  Sender: FDA-Public Use
  Company Number: US-BRISTOL-MYERS SQUIBB COMPANY-13996624

PATIENT
  Age: 11 Year
  Sex: Male
  Weight: 32 kg

DRUGS (2)
  1. ABILIFY [Suspect]
     Indication: BIPOLAR I DISORDER
  2. DEPAKOTE [Concomitant]

REACTIONS (3)
  - LETHARGY [None]
  - SKIN DISCOLOURATION [None]
  - SOCIAL AVOIDANT BEHAVIOUR [None]
